FAERS Safety Report 7655895-5 (Version None)
Quarter: 2011Q3

REPORT INFORMATION
  Report Type: 
  Country: None (occurrence: None)
  Receive Date: 20110804
  Receipt Date: 20110804
  Transmission Date: 20111222
  Serious: No
  Sender: FDA-Public Use
  Company Number: None

PATIENT
  Age: 19 Year
  Sex: Female
  Weight: 58.967 kg

DRUGS (1)
  1. COLCRYS [Suspect]
     Indication: FAMILIAL MEDITERRANEAN FEVER
     Dosage: 3 OR 4
     Route: 048
     Dates: start: 20110323, end: 20110430

REACTIONS (11)
  - CONDITION AGGRAVATED [None]
  - PRESYNCOPE [None]
  - PRODUCT SUBSTITUTION ISSUE [None]
  - STRESS [None]
  - DIARRHOEA [None]
  - NASOPHARYNGITIS [None]
  - IMPAIRED WORK ABILITY [None]
  - NAUSEA [None]
  - DRUG EFFECT DECREASED [None]
  - DIZZINESS [None]
  - FAMILIAL MEDITERRANEAN FEVER [None]
